FAERS Safety Report 8833010 (Version 3)
Quarter: 2013Q1

REPORT INFORMATION
  Report Type: Spontaneous
  Country: FR (occurrence: FR)
  Receive Date: 20121010
  Receipt Date: 20130107
  Transmission Date: 20140127
  Serious: Yes (Hospitalization)
  Sender: FDA-Public Use
  Company Number: FR-PFIZER INC-2012249103

PATIENT
  Age: 56 Year
  Sex: Female

DRUGS (5)
  1. INIPOMP [Suspect]
     Dosage: 40 MG, 1X/DAY
     Route: 048
  2. REVAXIS [Suspect]
     Dosage: UNK
     Route: 065
     Dates: start: 20120322, end: 20120322
  3. LEVOTHYROX [Suspect]
     Dosage: 50 UG, 1X/DAY
     Route: 048
  4. FENOFIBRATE [Suspect]
     Dosage: 160 MG, 1X/DAY
     Route: 048
  5. CEFTRIAXONE [Concomitant]
     Dosage: 1 DF, 1X/DAY

REACTIONS (7)
  - Arthralgia [Not Recovered/Not Resolved]
  - Myalgia [Not Recovered/Not Resolved]
  - Asthenia [Not Recovered/Not Resolved]
  - Headache [Not Recovered/Not Resolved]
  - Paraesthesia [Not Recovered/Not Resolved]
  - Erythema [Not Recovered/Not Resolved]
  - Pyrexia [Not Recovered/Not Resolved]
